FAERS Safety Report 10037303 (Version 1)
Quarter: 2014Q1

REPORT INFORMATION
  Report Type: Spontaneous
  Country: US (occurrence: None)
  Receive Date: 20140325
  Receipt Date: 20140325
  Transmission Date: 20141002
  Serious: Yes (Life-Threatening, Hospitalization)
  Sender: FDA-Public Use
  Company Number: None

PATIENT
  Age: 19 Year
  Sex: Female

DRUGS (1)
  1. ERYTHROMYCIN [Suspect]
     Indication: LYMPHADENOPATHY
     Dosage: 1 TABLET, FOUR TIMES DAILY, TAKEN BY MOUTH
     Route: 048
     Dates: start: 19780815, end: 19780823

REACTIONS (2)
  - Hypersensitivity [None]
  - Stevens-Johnson syndrome [None]
